FAERS Safety Report 7450662-X (Version None)
Quarter: 2011Q2

REPORT INFORMATION
  Report Type: 
  Country: None (occurrence: None)
  Receive Date: 20110502
  Receipt Date: 20110420
  Transmission Date: 20111010
  Serious: Yes (Other)
  Sender: FDA-Public Use
  Company Number: FR-SANOFI-AVENTIS-2011SA024703

PATIENT
  Age: 74 Year
  Sex: Male

DRUGS (3)
  1. FENOFIBRATE [Concomitant]
     Route: 048
     Dates: end: 20110208
  2. MULTAQ [Suspect]
     Route: 048
     Dates: start: 20110111, end: 20110208
  3. COTAREG ^NOVARTIS^ [Concomitant]
     Route: 048
     Dates: end: 20110208

REACTIONS (4)
  - ATRIAL FIBRILLATION [None]
  - BLOOD CREATININE INCREASED [None]
  - CREATININE RENAL CLEARANCE DECREASED [None]
  - DRUG INEFFECTIVE [None]
